FAERS Safety Report 10067955 (Version 1)
Quarter: 2014Q2

REPORT INFORMATION
  Report Type: Spontaneous
  Country: FR (occurrence: FR)
  Receive Date: 20140409
  Receipt Date: 20140409
  Transmission Date: 20141212
  Serious: Yes (Hospitalization)
  Sender: FDA-Public Use
  Company Number: FR-ASTRAZENECA-2014SE23577

PATIENT
  Age: 4761 Day
  Sex: Male

DRUGS (5)
  1. NAROPEINE [Suspect]
     Route: 053
     Dates: start: 20130426, end: 20130426
  2. FENTANYL [Suspect]
     Indication: GENERAL ANAESTHESIA
     Route: 042
     Dates: start: 20130426, end: 20130426
  3. PROPOFOL LIPURO (GENERIC DRUG - NON AZ PRODUCT) [Suspect]
     Indication: GENERAL ANAESTHESIA
     Route: 042
     Dates: start: 20130426, end: 20130426
  4. PARACETAMOL PANPHARMA [Suspect]
     Indication: PAIN
     Route: 042
     Dates: start: 20130426, end: 20130426
  5. SEVORANE [Suspect]
     Indication: GENERAL ANAESTHESIA
     Route: 055
     Dates: start: 20130426, end: 20130426

REACTIONS (2)
  - Skin reaction [Recovered/Resolved]
  - Eyelid oedema [Recovered/Resolved]
